FAERS Safety Report 5197166-5 (Version None)
Quarter: 2007Q1

REPORT INFORMATION
  Report Type: 
  Country: None (occurrence: None)
  Receive Date: 20070103
  Receipt Date: 20061221
  Transmission Date: 20070707
  Serious: Yes (Hospitalization)
  Sender: FDA-Public Use
  Company Number: 2006JP004391

PATIENT
  Age: 76 Year
  Sex: Female

DRUGS (1)
  1. CEFAZOLIN [Suspect]
     Dosage: 1G TWICE PER DAY
     Route: 042
     Dates: start: 20041027

REACTIONS (1)
  - RECTAL ULCER [None]
